FAERS Safety Report 8265143 (Version 4)
Quarter: 2013Q1

REPORT INFORMATION
  Report Type: Spontaneous
  Country: BR (occurrence: BR)
  Receive Date: 20111128
  Receipt Date: 20130204
  Transmission Date: 20140127
  Serious: Yes (Other)
  Sender: FDA-Public Use
  Company Number: PHHY2011BR102034

PATIENT
  Sex: Female
  Weight: 57 kg

DRUGS (4)
  1. DIOVAN [Suspect]
     Indication: HYPERTENSION
     Dosage: 0NE TABLET DAILY
     Route: 048
  2. MONOCORDIL [Concomitant]
     Indication: HYPERTENSION
     Dosage: 20 MG,(ONE TABLET AT MORNING AND ONE AT AFTERNOON)
     Route: 048
  3. ATENOLOL [Concomitant]
     Indication: HEART RATE INCREASED
     Dosage: ONE TABLET DAILY
     Route: 048
  4. PURAN T4 [Concomitant]
     Indication: THYROID DISORDER
     Dosage: ONE TABLET DAILY
     Route: 048

REACTIONS (11)
  - Bladder dysfunction [Not Recovered/Not Resolved]
  - Hypertension [Not Recovered/Not Resolved]
  - Urinary tract infection [Not Recovered/Not Resolved]
  - Candida infection [Not Recovered/Not Resolved]
  - Chest discomfort [Recovering/Resolving]
  - Nervousness [Recovering/Resolving]
  - Depression [Recovering/Resolving]
  - Decreased appetite [Not Recovered/Not Resolved]
  - Weight decreased [Not Recovered/Not Resolved]
  - Heart rate increased [Recovering/Resolving]
  - Headache [Recovering/Resolving]
